FAERS Safety Report 24847370 (Version 1)
Quarter: 2025Q1

REPORT INFORMATION
  Report Type: Spontaneous
  Country: US (occurrence: US)
  Receive Date: 20250116
  Receipt Date: 20250116
  Transmission Date: 20250409
  Serious: No
  Sender: STRIDES
  Company Number: US-STRIDES ARCOLAB LIMITED-2024SP015173

PATIENT
  Age: 45 Year
  Sex: Male

DRUGS (5)
  1. PREDNISOLONE [Suspect]
     Active Substance: PREDNISOLONE
     Indication: Adrenogenital syndrome
     Route: 065
  2. FLUDROCORTISONE [Suspect]
     Active Substance: FLUDROCORTISONE
     Indication: Adrenogenital syndrome
     Route: 065
  3. FLUDROCORTISONE [Suspect]
     Active Substance: FLUDROCORTISONE
     Route: 065
  4. HYDROCORTISONE [Concomitant]
     Active Substance: HYDROCORTISONE
     Indication: Adrenogenital syndrome
     Route: 065
  5. HYDROCORTISONE [Concomitant]
     Active Substance: HYDROCORTISONE
     Route: 065

REACTIONS (1)
  - Treatment noncompliance [Unknown]
